FAERS Safety Report 10794829 (Version 2)
Quarter: 2015Q1

REPORT INFORMATION
  Report Type: Spontaneous
  Country: US (occurrence: US)
  Receive Date: 20150213
  Receipt Date: 20150224
  Transmission Date: 20150721
  Serious: No
  Sender: FDA-Public Use
  Company Number: US-GLAXOSMITHKLINE-US2015GSK016646

PATIENT
  Sex: Male

DRUGS (1)
  1. BENLYSTA [Suspect]
     Active Substance: BELIMUMAB
     Indication: SYSTEMIC LUPUS ERYTHEMATOSUS
     Dates: start: 201405, end: 201501

REACTIONS (5)
  - Thinking abnormal [Unknown]
  - Pain [Unknown]
  - Paraesthesia [Unknown]
  - Ill-defined disorder [Unknown]
  - Antinuclear antibody increased [Unknown]
